FAERS Safety Report 4674787-7 (Version None)
Quarter: 2005Q2

REPORT INFORMATION
  Report Type: 
  Country: None (occurrence: None)
  Receive Date: 20050525
  Receipt Date: 20050517
  Transmission Date: 20051028
  Serious: Yes (Disabling, Other)
  Sender: FDA-Public Use
  Company Number: 200511009BWH

PATIENT
  Age: 25 Year
  Sex: Male

DRUGS (2)
  1. CIPROFLOXACIN [Suspect]
     Indication: BACTERIAL INFECTION
     Dosage: 500 MG, BID, ORAL
     Route: 048
     Dates: start: 20040801
  2. CIPROFLOXACIN [Suspect]
     Indication: PROSTATITIS
     Dosage: 500 MG, BID, ORAL
     Route: 048
     Dates: start: 20040801

REACTIONS (5)
  - CHRONIC FATIGUE SYNDROME [None]
  - FIBROMYALGIA [None]
  - HYPOAESTHESIA [None]
  - IRRITABLE BOWEL SYNDROME [None]
  - MUSCLE INJURY [None]
